FAERS Safety Report 9137409 (Version 1)
Quarter: 2013Q1

REPORT INFORMATION
  Report Type: Spontaneous
  Country: JP (occurrence: JP)
  Receive Date: 20130304
  Receipt Date: 20130304
  Transmission Date: 20140127
  Serious: Yes (Death, Hospitalization)
  Sender: FDA-Public Use
  Company Number: PHHY2012JP111779

PATIENT
  Sex: Male
  Weight: 73 kg

DRUGS (1)
  1. NEORAL [Suspect]
     Indication: PSORIASIS
     Dosage: 200 MG, DAILY
     Route: 048
     Dates: start: 2003

REACTIONS (1)
  - Hepatocellular carcinoma [Fatal]
